FAERS Safety Report 8885995 (Version 2)
Quarter: 2012Q4

REPORT INFORMATION
  Report Type: Report from Study
  Country: FR (occurrence: FR)
  Receive Date: 20121105
  Receipt Date: 20121107
  Transmission Date: 20130627
  Serious: Yes (Life-Threatening, Hospitalization)
  Sender: FDA-Public Use
  Company Number: FR-ROCHE-1151977

PATIENT
  Age: 39 Year
  Sex: Male

DRUGS (5)
  1. SOMATROPIN [Suspect]
     Indication: HYPOPITUITARISM
     Dosage: 10 mg/2 ml
     Route: 058
     Dates: start: 20080212, end: 20121002
  2. HYDROCORTISONE [Concomitant]
     Indication: HYPOPITUITARISM
     Route: 048
     Dates: start: 1990
  3. LEVOTHYROX [Concomitant]
     Indication: HYPOPITUITARISM
     Route: 048
  4. DESMOPRESSIN ACETATE [Concomitant]
     Indication: HYPOPITUITARISM
     Route: 048
     Dates: start: 1990
  5. ANDROTARDYL [Concomitant]
     Indication: HYPOPITUITARISM
     Route: 065
     Dates: start: 1990

REACTIONS (7)
  - Septic shock [Recovered/Resolved]
  - Enterocolitis infectious [Recovered/Resolved]
  - Meningism [Recovered/Resolved]
  - Device related sepsis [Recovered/Resolved]
  - Thrombosis [Recovered/Resolved]
  - Subileus [Recovered/Resolved]
  - Oesophagitis [Recovered/Resolved]
